FAERS Safety Report 4605033-8 (Version None)
Quarter: 2005Q1

REPORT INFORMATION
  Report Type: 
  Country: None (occurrence: None)
  Receive Date: 20050311
  Receipt Date: 20050302
  Transmission Date: 20050727
  Serious: Yes (Hospitalization)
  Sender: FDA-Public Use
  Company Number: 200510558EU

PATIENT
  Sex: Female

DRUGS (3)
  1. DAUNORUBICIN HCL [Suspect]
     Indication: ACUTE LYMPHOCYTIC LEUKAEMIA
     Route: 042
     Dates: start: 20050217, end: 20050217
  2. ASPARAGINASE ^MEDAC^ [Suspect]
     Indication: ACUTE LYMPHOCYTIC LEUKAEMIA
     Route: 042
     Dates: start: 20050220, end: 20050220
  3. PREDNISONE [Concomitant]
     Route: 048
     Dates: start: 20050126

REACTIONS (2)
  - MUCOSAL INFLAMMATION [None]
  - PARONYCHIA [None]
